FAERS Safety Report 18531017 (Version 5)
Quarter: 2021Q2

REPORT INFORMATION
  Report Type: Spontaneous
  Country: JP (occurrence: JP)
  Receive Date: 20201122
  Receipt Date: 20210409
  Transmission Date: 20210717
  Serious: Yes (Hospitalization, Other)
  Sender: FDA-Public Use
  Company Number: JP-JNJFOC-20201127704

PATIENT
  Age: 69 Year
  Sex: Male
  Weight: 59.5 kg

DRUGS (10)
  1. TOARASET [Concomitant]
     Active Substance: ACETAMINOPHEN\TRAMADOL HYDROCHLORIDE
     Route: 048
  2. DENOTAS [Concomitant]
     Active Substance: CALCIUM CARBONATE\CHOLECALCIFEROL\MAGNESIUM CARBONATE
     Route: 048
  3. CARVEDILOL. [Concomitant]
     Active Substance: CARVEDILOL
     Route: 048
  4. AMLODIPINE [Concomitant]
     Active Substance: AMLODIPINE BESYLATE
     Route: 048
  5. RANMARK [Concomitant]
     Active Substance: DENOSUMAB
     Route: 058
     Dates: start: 20190725, end: 20200928
  6. CELECOXIB. [Concomitant]
     Active Substance: CELECOXIB
     Route: 048
  7. PREDONINE [Concomitant]
     Active Substance: PREDNISOLONE
     Indication: HORMONE-REFRACTORY PROSTATE CANCER
     Route: 048
     Dates: start: 20181115, end: 20201011
  8. LANSOPRAZOLE OD [Concomitant]
     Active Substance: LANSOPRAZOLE
     Route: 048
  9. GONAX [Concomitant]
     Active Substance: DEGARELIX
     Route: 058
     Dates: start: 20181011, end: 20200824
  10. ZYTIGA [Suspect]
     Active Substance: ABIRATERONE ACETATE
     Indication: HORMONE-REFRACTORY PROSTATE CANCER
     Route: 048
     Dates: start: 20181115, end: 20201011

REACTIONS (4)
  - Brain abscess [Recovering/Resolving]
  - Pulmonary artery thrombosis [Recovering/Resolving]
  - Extradural abscess [Recovering/Resolving]
  - Acute respiratory distress syndrome [Recovering/Resolving]

NARRATIVE: CASE EVENT DATE: 20201009
